FAERS Safety Report 6600550-3 (Version None)
Quarter: 2010Q1

REPORT INFORMATION
  Report Type: 
  Country: None (occurrence: None)
  Receive Date: 20100223
  Receipt Date: 20100223
  Transmission Date: 20100710
  Serious: No
  Sender: FDA-Public Use
  Company Number: None

PATIENT
  Sex: Female
  Weight: 54.4316 kg

DRUGS (1)
  1. CHORIONIC GONADOTROPIN [Suspect]
     Indication: INFERTILITY
     Dosage: 5,000 IU 1 INJECTION 36HRS PRIOR TO EGG RETRIEVAL IM
     Route: 030

REACTIONS (1)
  - DRUG INEFFECTIVE [None]
